FAERS Safety Report 14869878 (Version 1)
Quarter: 2018Q2

REPORT INFORMATION
  Report Type: Report from Study
  Country: CO (occurrence: CO)
  Receive Date: 20180509
  Receipt Date: 20180509
  Transmission Date: 20180711
  Serious: Yes (Other)
  Sender: FDA-Public Use
  Company Number: CO-ROCHE-2119048

PATIENT
  Age: 7 Year
  Sex: Female
  Weight: 22 kg

DRUGS (3)
  1. XOLAIR [Suspect]
     Active Substance: OMALIZUMAB
     Route: 058
     Dates: start: 20180420
  2. XOLAIR [Suspect]
     Active Substance: OMALIZUMAB
     Indication: ASTHMA
     Route: 058
     Dates: start: 20180307
  3. XOLAIR [Suspect]
     Active Substance: OMALIZUMAB
     Route: 058
     Dates: start: 20180407

REACTIONS (14)
  - Pruritus generalised [Unknown]
  - Generalised oedema [Unknown]
  - Abdominal pain upper [Recovered/Resolved]
  - Swollen tongue [Unknown]
  - Urticaria [Recovered/Resolved]
  - Swelling face [Unknown]
  - Erythema [Unknown]
  - Acne [Not Recovered/Not Resolved]
  - Cheilitis [Unknown]
  - Blepharitis [Unknown]
  - Joint swelling [Unknown]
  - Diarrhoea [Recovered/Resolved]
  - Vomiting [Recovered/Resolved]
  - Peripheral swelling [Unknown]

NARRATIVE: CASE EVENT DATE: 20180407
